FAERS Safety Report 15364437 (Version 1)
Quarter: 2018Q3

REPORT INFORMATION
  Report Type: Spontaneous
  Country: DE (occurrence: DE)
  Receive Date: 20180909
  Receipt Date: 20180909
  Transmission Date: 20181010
  Serious: Yes (Other)
  Sender: FDA-Public Use
  Company Number: DE-B.I. PHARMACEUTICALS,INC./RIDGEFIELD-2018-BI-044402

PATIENT
  Age: 83 Year
  Sex: Female

DRUGS (1)
  1. PRADAXA [Suspect]
     Active Substance: DABIGATRAN ETEXILATE MESYLATE
     Indication: PRODUCT USED FOR UNKNOWN INDICATION
     Route: 065
     Dates: start: 20180403

REACTIONS (9)
  - Visual impairment [Unknown]
  - Temporal arteritis [Not Recovered/Not Resolved]
  - Pupillary disorder [Unknown]
  - Contusion [Unknown]
  - Off label use [Unknown]
  - Headache [Unknown]
  - Visual field defect [Unknown]
  - Polymyalgia rheumatica [Not Recovered/Not Resolved]
  - Dizziness [Unknown]

NARRATIVE: CASE EVENT DATE: 20180403
